FAERS Safety Report 14913685 (Version 11)
Quarter: 2019Q3

REPORT INFORMATION
  Report Type: Spontaneous
  Country: CA (occurrence: CA)
  Receive Date: 20180518
  Receipt Date: 20190822
  Transmission Date: 20191004
  Serious: Yes (Other)
  Sender: FDA-Public Use
  Company Number: CA-CELLTRION INC.-2018CA017544

PATIENT

DRUGS (17)
  1. INFLECTRA [Suspect]
     Active Substance: INFLIXIMAB-DYYB
     Dosage: 430 MG, (EVERY 4 WEEKS)
     Route: 042
     Dates: start: 20180228
  2. INFLECTRA [Suspect]
     Active Substance: INFLIXIMAB-DYYB
     Dosage: 400 MG, (EVERY 4 WEEKS)
     Route: 042
     Dates: start: 20190703
  3. INFLECTRA [Suspect]
     Active Substance: INFLIXIMAB-DYYB
     Indication: COLITIS ULCERATIVE
     Dosage: 400 MG, (0, 2, AND 6 WEEKS THEN EVERY 8 WEEKS)
     Route: 042
     Dates: start: 20171219, end: 20180209
  4. INFLECTRA [Suspect]
     Active Substance: INFLIXIMAB-DYYB
     Dosage: 400 MG, (EVERY 4 WEEKS)
     Route: 042
     Dates: start: 20181022
  5. INFLECTRA [Suspect]
     Active Substance: INFLIXIMAB-DYYB
     Dosage: 400 MG, (EVERY 4 WEEKS)
     Route: 042
     Dates: start: 20181119
  6. INFLECTRA [Suspect]
     Active Substance: INFLIXIMAB-DYYB
     Dosage: 400 MG, (EVERY 4 WEEKS)
     Route: 042
     Dates: start: 20190311
  7. AZATHIOPRINE. [Concomitant]
     Active Substance: AZATHIOPRINE
     Dosage: 50 MG, 1X/DAY
     Route: 048
  8. INFLECTRA [Suspect]
     Active Substance: INFLIXIMAB-DYYB
     Dosage: 400 MG, (0, 2, AND 6 WEEKS THEN EVERY 8 WEEKS)
     Route: 042
     Dates: start: 20180209, end: 20180209
  9. INFLECTRA [Suspect]
     Active Substance: INFLIXIMAB-DYYB
     Dosage: 430 MG, (EVERY 4 WEEKS)
     Route: 042
     Dates: start: 20180528
  10. INFLECTRA [Suspect]
     Active Substance: INFLIXIMAB-DYYB
     Dosage: 400 MG, (EVERY 4 WEEKS)
     Route: 042
     Dates: start: 20190506
  11. INFLECTRA [Suspect]
     Active Substance: INFLIXIMAB-DYYB
     Dosage: 400 MG, (EVERY 4 WEEKS)
     Route: 042
     Dates: start: 20190604
  12. INFLECTRA [Suspect]
     Active Substance: INFLIXIMAB-DYYB
     Dosage: 430 MG, (EVERY 4 WEEKS)
     Route: 042
     Dates: start: 20180228
  13. INFLECTRA [Suspect]
     Active Substance: INFLIXIMAB-DYYB
     Dosage: 430 MG, (EVERY 4 WEEKS)
     Route: 042
     Dates: start: 20180424
  14. INFLECTRA [Suspect]
     Active Substance: INFLIXIMAB-DYYB
     Dosage: UNK
  15. INFLECTRA [Suspect]
     Active Substance: INFLIXIMAB-DYYB
     Dosage: 430 MG, (EVERY 4 WEEKS)
     Route: 042
     Dates: start: 20180329
  16. VANCOMYCIN [Concomitant]
     Active Substance: VANCOMYCIN
     Indication: CLOSTRIDIUM DIFFICILE INFECTION
     Dosage: 4 DF, DAILY
     Route: 048
     Dates: start: 201710
  17. FENTANYL. [Concomitant]
     Active Substance: FENTANYL
     Indication: SEDATIVE THERAPY
     Dosage: 50 UG, UNK
     Route: 042
     Dates: start: 20180326, end: 20180326

REACTIONS (17)
  - Clostridium difficile infection [Unknown]
  - Blood pressure fluctuation [Unknown]
  - Inflammatory bowel disease [Unknown]
  - Body temperature fluctuation [Recovered/Resolved]
  - Hypotension [Unknown]
  - Haemorrhoids [Unknown]
  - Drug level above therapeutic [Unknown]
  - Inappropriate schedule of product administration [Unknown]
  - Pseudopolyposis [Unknown]
  - Diverticulitis [Unknown]
  - Off label use [Unknown]
  - Faecal calprotectin increased [Unknown]
  - Drug level below therapeutic [Recovered/Resolved]
  - Therapeutic product effect incomplete [Recovering/Resolving]
  - Large intestinal ulcer [Unknown]
  - Inflammation [Unknown]
  - Intentional product use issue [Unknown]

NARRATIVE: CASE EVENT DATE: 20180228
